FAERS Safety Report 23354475 (Version 2)
Quarter: 2024Q2

REPORT INFORMATION
  Report Type: Spontaneous
  Country: DE (occurrence: DE)
  Receive Date: 20240101
  Receipt Date: 20240515
  Transmission Date: 20240716
  Serious: Yes (Hospitalization, Other)
  Sender: FDA-Public Use
  Company Number: DE-EMA-DD-20190122-hv_a-123110

PATIENT
  Age: 66 Year
  Sex: Male
  Weight: 74 kg

DRUGS (9)
  1. DICLOFENAC [Suspect]
     Active Substance: DICLOFENAC
     Indication: Gout
     Dosage: UNK
     Route: 048
     Dates: start: 20180826
  2. ENTRESTO [Suspect]
     Active Substance: SACUBITRIL\VALSARTAN
     Indication: Heart failure with reduced ejection fraction
     Dosage: 200 MG(SACUBITRIL 97 MG/ VALSARTAN 103 MG), BID
     Route: 048
     Dates: start: 20171009, end: 20180826
  3. ENTRESTO [Suspect]
     Active Substance: SACUBITRIL\VALSARTAN
     Dosage: 100 MG(SACUBITRIL 49 MG/ VALSARTAN 51 MG) , BID
     Route: 048
     Dates: start: 20170527, end: 20171008
  4. ENTRESTO [Suspect]
     Active Substance: SACUBITRIL\VALSARTAN
     Dosage: 100 MG, BID
     Route: 048
     Dates: start: 20181207
  5. ENTRESTO [Suspect]
     Active Substance: SACUBITRIL\VALSARTAN
     Dosage: 200 MG (97 MG SACUBITRIL, 103 MG VALSARTAN), BID
     Route: 048
     Dates: start: 20180903, end: 20181206
  6. ENTRESTO [Suspect]
     Active Substance: SACUBITRIL\VALSARTAN
     Dosage: 1 DF, BID (97 MG SACUBITRI/ 103 MG  VALSARTAN)
     Route: 048
     Dates: start: 20180607, end: 20180615
  7. EPLERENONE [Concomitant]
     Active Substance: EPLERENONE
     Indication: Cardiac failure
     Dosage: 25 OT, UNK
     Route: 048
     Dates: start: 20180612, end: 20180826
  8. DIGITOXIN [Concomitant]
     Active Substance: DIGITOXIN
     Indication: Cardiac failure
     Dosage: 0.07 OT, UNK
     Route: 048
     Dates: start: 20180608
  9. NEBIVOLOL [Concomitant]
     Active Substance: NEBIVOLOL
     Indication: Cardiac failure
     Dosage: 5 OT, UNK
     Route: 048
     Dates: start: 20180608

REACTIONS (20)
  - Coronary artery disease [Recovering/Resolving]
  - Type 2 diabetes mellitus [Not Recovered/Not Resolved]
  - Mitral valve incompetence [Recovering/Resolving]
  - Concomitant disease aggravated [Recovering/Resolving]
  - Troponin I increased [Unknown]
  - Steroid diabetes [Not Recovered/Not Resolved]
  - Infective exacerbation of chronic obstructive airways disease [Recovering/Resolving]
  - Hyperuricaemia [Not Recovered/Not Resolved]
  - Mental disorder [Not Recovered/Not Resolved]
  - Intervertebral disc protrusion [Unknown]
  - Cardiac failure [Recovered/Resolved]
  - Cardiac failure [Recovered/Resolved]
  - Dyspnoea [Not Recovered/Not Resolved]
  - Renal failure [Recovering/Resolving]
  - Depression [Unknown]
  - Panic attack [Not Recovered/Not Resolved]
  - Spinal stenosis [Unknown]
  - Epistaxis [Recovered/Resolved]
  - Gout [Recovering/Resolving]
  - Intervertebral disc protrusion [Unknown]

NARRATIVE: CASE EVENT DATE: 20180607
